FAERS Safety Report 7641624-8 (Version None)
Quarter: 2011Q3

REPORT INFORMATION
  Report Type: 
  Country: None (occurrence: None)
  Receive Date: 20110728
  Receipt Date: 20110708
  Transmission Date: 20111222
  Serious: Yes (Hospitalization)
  Sender: FDA-Public Use
  Company Number: US-GLAXOSMITHKLINE-A0748632A

PATIENT
  Age: 53 Year
  Sex: Female
  Weight: 100 kg

DRUGS (4)
  1. SYNTHROID [Concomitant]
  2. AVANDIA [Suspect]
     Indication: DIABETES MELLITUS
     Dosage: 4MG TWICE PER DAY
     Route: 048
     Dates: start: 20030412, end: 20050201
  3. HUMALOG [Concomitant]
  4. LANTUS [Concomitant]

REACTIONS (4)
  - CARDIAC FAILURE CONGESTIVE [None]
  - CARDIAC VALVE DISEASE [None]
  - DIASTOLIC DYSFUNCTION [None]
  - VENTRICULAR DYSFUNCTION [None]
